FAERS Safety Report 26162675 (Version 1)
Quarter: 2025Q4

REPORT INFORMATION
  Report Type: Report from Study
  Country: US (occurrence: US)
  Receive Date: 20251216
  Receipt Date: 20251216
  Transmission Date: 20260118
  Serious: Yes (Hospitalization, Other)
  Sender: BAYER HEALTHCARE PHARMACEUTICALS INC.
  Company Number: US-BAYER-2025A116929

PATIENT
  Age: 64 Year
  Sex: Female
  Weight: 79.365 kg

DRUGS (23)
  1. ADEMPAS [Suspect]
     Active Substance: RIOCIGUAT
     Indication: Pulmonary arterial hypertension
     Dosage: UNK
     Dates: start: 20230215
  2. ADEMPAS [Suspect]
     Active Substance: RIOCIGUAT
     Indication: Pulmonary arterial hypertension
     Dosage: 2.5 MG, TID
     Route: 048
  3. ADEMPAS [Suspect]
     Active Substance: RIOCIGUAT
     Indication: Pulmonary arterial hypertension
     Dosage: 2.5 MG, TID
     Route: 048
  4. ADEMPAS [Suspect]
     Active Substance: RIOCIGUAT
     Indication: Pulmonary arterial hypertension
     Dosage: 2.5 MG, TID
     Route: 048
  5. PRISTIQ EXTENDED-RELEASE [Concomitant]
     Active Substance: DESVENLAFAXINE SUCCINATE
  6. UPTRAVI [Concomitant]
     Active Substance: SELEXIPAG
  7. MELATONIN [Concomitant]
     Active Substance: MELATONIN
  8. TYLENOL EXTRA STRENGTH [Concomitant]
     Active Substance: ACETAMINOPHEN
  9. TRELEGY ELLIPTA [Concomitant]
     Active Substance: FLUTICASONE FUROATE\UMECLIDINIUM BROMIDE\VILANTEROL TRIFENATATE
  10. BUMETANIDE [Concomitant]
     Active Substance: BUMETANIDE
  11. ALBUTEROL SULFATE [Concomitant]
     Active Substance: ALBUTEROL SULFATE
  12. ELIQUIS [Concomitant]
     Active Substance: APIXABAN
  13. GABAPENTIN [Concomitant]
     Active Substance: GABAPENTIN
  14. OPSUMIT [Concomitant]
     Active Substance: MACITENTAN
  15. CLONAZEPAM [Concomitant]
     Active Substance: CLONAZEPAM
  16. OXYGEN [Concomitant]
     Active Substance: OXYGEN
  17. GEODON [Concomitant]
     Active Substance: ZIPRASIDONE HYDROCHLORIDE\ZIPRASIDONE MESYLATE
  18. OMEPRAZOLE [Concomitant]
     Active Substance: OMEPRAZOLE
  19. WINREVAIR [Concomitant]
     Active Substance: SOTATERCEPT-CSRK
  20. UNSPECIFIED INGREDIENT [Concomitant]
     Active Substance: UNSPECIFIED INGREDIENT
  21. CYCLOBENZAPRINE HYDROCHLORIDE [Concomitant]
     Active Substance: CYCLOBENZAPRINE HYDROCHLORIDE
  22. HYDROXYZINE HYDROCHLORIDE [Concomitant]
     Active Substance: HYDROXYZINE HYDROCHLORIDE
  23. LOPERAMIDE [Concomitant]
     Active Substance: LOPERAMIDE

REACTIONS (8)
  - Asthma [None]
  - Lung disorder [None]
  - Medical procedure [Recovering/Resolving]
  - Post procedural infection [Recovering/Resolving]
  - Dyspnoea [None]
  - Hypotension [None]
  - Diarrhoea [None]
  - Laboratory test abnormal [None]

NARRATIVE: CASE EVENT DATE: 20250901
